FAERS Safety Report 14689230 (Version 5)
Quarter: 2018Q4

REPORT INFORMATION
  Report Type: Spontaneous
  Country: RO (occurrence: RO)
  Receive Date: 20180328
  Receipt Date: 20181108
  Transmission Date: 20190204
  Serious: Yes (Other)
  Sender: FDA-Public Use
  Company Number: RO-PFIZER INC-2018124381

PATIENT
  Age: 66 Year
  Sex: Male

DRUGS (3)
  1. PACLITAXEL. [Suspect]
     Active Substance: PACLITAXEL
     Indication: LUNG CANCER METASTATIC
     Dosage: 200 MG/M2, CYCLIC (MEASURED AS Q3W, 6 CYCLES)
  2. ZOLEDRONIC ACID [Suspect]
     Active Substance: ZOLEDRONIC ACID
     Indication: LUNG CANCER METASTATIC
     Dosage: UNK, CYCLIC (MEASURED AS Q3W, 6 CYCLES)
  3. CARBOPLATIN. [Suspect]
     Active Substance: CARBOPLATIN
     Indication: LUNG CANCER METASTATIC
     Dosage: UNK, CYCLIC (MEASURED AS Q3W (AUC6)6 CYCLES)

REACTIONS (2)
  - Hepatotoxicity [Unknown]
  - Aplastic anaemia [Unknown]
